FAERS Safety Report 9159749 (Version 2)
Quarter: 2013Q2

REPORT INFORMATION
  Report Type: Report from Study
  Country: US (occurrence: US)
  Receive Date: 20130313
  Receipt Date: 20130521
  Transmission Date: 20140414
  Serious: Yes (Other)
  Sender: FDA-Public Use
  Company Number: US-JNJFOC-20130300191

PATIENT
  Age: 72 Year
  Sex: Female
  Weight: 76.66 kg

DRUGS (11)
  1. REMICADE [Suspect]
     Indication: RHEUMATOID ARTHRITIS
     Route: 042
     Dates: start: 20121205
  2. REMICADE [Suspect]
     Indication: RHEUMATOID ARTHRITIS
     Route: 042
     Dates: start: 20120723, end: 2012
  3. LEVAQUIN [Suspect]
     Indication: SINUSITIS
     Route: 065
     Dates: start: 20130206, end: 20130207
  4. METHOTREXATE [Suspect]
     Indication: ARTHRITIS
     Route: 065
     Dates: start: 2012, end: 2013
  5. BACTRIM [Suspect]
     Indication: SINUSITIS
     Route: 065
     Dates: start: 20130211, end: 20130221
  6. ANASTROZOLE [Concomitant]
     Indication: BREAST CANCER
     Route: 048
     Dates: start: 2012
  7. ALLEGRA [Concomitant]
     Indication: MULTIPLE ALLERGIES
     Route: 048
     Dates: start: 2012
  8. LISINOPRIL [Concomitant]
     Indication: HYPERTENSION
     Route: 048
     Dates: start: 2003
  9. HYDROCHLOROTHIAZIDE [Concomitant]
     Indication: HYPERTENSION
     Route: 048
     Dates: start: 2003
  10. LOVASTATIN [Concomitant]
     Indication: BLOOD CHOLESTEROL INCREASED
     Route: 048
     Dates: start: 2003
  11. FOLIC ACID [Concomitant]
     Indication: ARTHRITIS
     Route: 048
     Dates: start: 2003

REACTIONS (4)
  - Breast cyst [Not Recovered/Not Resolved]
  - Muscle tightness [Recovered/Resolved]
  - Pain in extremity [Not Recovered/Not Resolved]
  - Sinusitis [Not Recovered/Not Resolved]
